FAERS Safety Report 4939218-8 (Version None)
Quarter: 2006Q1

REPORT INFORMATION
  Report Type: 
  Country: None (occurrence: None)
  Receive Date: 20060306
  Receipt Date: 20060222
  Transmission Date: 20060701
  Serious: Yes (Other)
  Sender: FDA-Public Use
  Company Number: 13554

PATIENT
  Age: 15 Year
  Sex: Female

DRUGS (8)
  1. METHOTREXATE [Suspect]
     Indication: ARTHRITIS
     Dosage: 10 MG WEEKLY ST
     Dates: start: 20050629
  2. METHOTREXATE [Suspect]
     Indication: ARTHRITIS
     Dosage: 15 MG WEEKLY ST
     Dates: end: 20050914
  3. METHOTREXATE [Suspect]
     Indication: ARTHRITIS
     Dosage: 15 MG 2/WK
     Dates: start: 20060101
  4. FELDEN [Concomitant]
  5. PREDNISOLONE [Concomitant]
  6. FOLIC ACID [Concomitant]
  7. OMEPRAZOLE [Concomitant]
  8. CO-CODAMOL [Concomitant]

REACTIONS (3)
  - CONDITION AGGRAVATED [None]
  - JUVENILE ARTHRITIS [None]
  - MALAISE [None]
